FAERS Safety Report 23597974 (Version 2)
Quarter: 2024Q3

REPORT INFORMATION
  Report Type: Report from Study
  Country: US (occurrence: US)
  Receive Date: 20240305
  Receipt Date: 20240826
  Transmission Date: 20241017
  Serious: Yes (Hospitalization)
  Sender: MYLAN
  Company Number: US-MYLANLABS-2024M1020564

PATIENT
  Age: 23 Year
  Sex: Female
  Weight: 105.2 kg

DRUGS (5)
  1. CLOZAPINE [Suspect]
     Active Substance: CLOZAPINE
     Indication: Schizoaffective disorder
     Dosage: 450 MILLIGRAM, QD (DAILY) (MAX DOSE)
     Route: 048
     Dates: start: 202101, end: 20240417
  2. CLOZAPINE [Concomitant]
     Active Substance: CLOZAPINE
     Dosage: 225 MILLIGRAM, QD (DAILY)
     Route: 065
     Dates: start: 20240329
  3. DULOXETINE [Concomitant]
     Active Substance: DULOXETINE
     Dosage: 30 MILLIGRAM, QD (DAILY)
     Route: 065
  4. HALOPERIDOL [Concomitant]
     Active Substance: HALOPERIDOL
     Dosage: 10 MILLIGRAM, QD (2.5MG AM/ 7.5MG PM)
     Route: 065
  5. LAMOTRIGINE [Concomitant]
     Active Substance: LAMOTRIGINE
     Dosage: 200 MILLIGRAM, QD (DAILY)
     Route: 065

REACTIONS (3)
  - Hospitalisation [Recovered/Resolved]
  - Dyspnoea [Recovered/Resolved]
  - Platelet count increased [Unknown]

NARRATIVE: CASE EVENT DATE: 20240329
